FAERS Safety Report 9459003 (Version 1)
Quarter: 2013Q3

REPORT INFORMATION
  Report Type: Spontaneous
  Country: US (occurrence: US)
  Receive Date: 20130814
  Receipt Date: 20130814
  Transmission Date: 20140515
  Serious: Yes (Other)
  Sender: FDA-Public Use
  Company Number: US-TEVA-426109USA

PATIENT
  Sex: Female

DRUGS (7)
  1. PROVIGIL [Suspect]
  2. ZYPREXA [Suspect]
  3. PREGABALIN [Concomitant]
  4. DEPAKOTE [Concomitant]
  5. CHANTIX [Concomitant]
  6. DRAMAMINE [Concomitant]
  7. DIPHENHYDRAMINE [Concomitant]

REACTIONS (1)
  - Urinary retention [Unknown]
